FAERS Safety Report 4437540-5 (Version None)
Quarter: 2004Q3

REPORT INFORMATION
  Report Type: 
  Country: None (occurrence: None)
  Receive Date: 20040827
  Receipt Date: 20040819
  Transmission Date: 20050211
  Serious: Yes (Hospitalization)
  Sender: FDA-Public Use
  Company Number: HQWYE181816JUL04

PATIENT
  Age: 84 Year
  Sex: Female

DRUGS (3)
  1. CORDARONE [Suspect]
     Indication: ATRIAL FIBRILLATION
     Dosage: SEE IMAGE
     Route: 048
     Dates: start: 20020101, end: 20040601
  2. CORDARONE [Suspect]
     Indication: ATRIAL FIBRILLATION
     Dosage: SEE IMAGE
     Route: 048
     Dates: start: 20040601
  3. KARDEGIC (ACETYLSALICYLIC LYSINE) [Concomitant]

REACTIONS (5)
  - DEMYELINATING POLYNEUROPATHY [None]
  - PERIPHERAL PARALYSIS [None]
  - PERIPHERAL SENSORIMOTOR NEUROPATHY [None]
  - POLYNEUROPATHY [None]
  - RADIAL NERVE PALSY [None]
